FAERS Safety Report 12807784 (Version 1)
Quarter: 2016Q4

REPORT INFORMATION
  Report Type: Spontaneous
  Country: US (occurrence: US)
  Receive Date: 20161004
  Receipt Date: 20161004
  Transmission Date: 20170207
  Serious: No
  Sender: FDA-Public Use
  Company Number: US-AMGEN-USASP2016070314

PATIENT
  Age: 76 Year
  Sex: Female

DRUGS (2)
  1. XGEVA [Suspect]
     Active Substance: DENOSUMAB
     Indication: BREAST CANCER METASTATIC
     Dosage: UNK UNK, QMO
     Route: 065
     Dates: start: 2015
  2. IBRANCE [Suspect]
     Active Substance: PALBOCICLIB
     Indication: CHEMOTHERAPY
     Dosage: 125 MG, FOR 3 WKS AND OFF FOR 1 WK
     Route: 048

REACTIONS (2)
  - Gingival recession [Unknown]
  - Tooth fracture [Unknown]
